FAERS Safety Report 19510040 (Version 1)
Quarter: 2021Q3

REPORT INFORMATION
  Report Type: Report from Study
  Country: US (occurrence: US)
  Receive Date: 20210708
  Receipt Date: 20210708
  Transmission Date: 20211014
  Serious: Yes (Hospitalization)
  Sender: FDA-Public Use
  Company Number: US-INCYTE CORPORATION-2021IN005012

PATIENT

DRUGS (1)
  1. INCB054828 [Suspect]
     Active Substance: PEMIGATINIB
     Indication: BLADDER CANCER
     Dosage: 9 MILLIGRAM, QD
     Route: 048
     Dates: start: 20210210, end: 20210526

REACTIONS (3)
  - Dehydration [Recovered/Resolved]
  - Diarrhoea [Recovered/Resolved]
  - Pneumonitis [Recovering/Resolving]

NARRATIVE: CASE EVENT DATE: 20210602
